FAERS Safety Report 5230209-9 (Version None)
Quarter: 2007Q1

REPORT INFORMATION
  Report Type: 
  Country: None (occurrence: None)
  Receive Date: 20070206
  Receipt Date: 20061003
  Transmission Date: 20070707
  Serious: No
  Sender: FDA-Public Use
  Company Number: US-GLAXOSMITHKLINE-A0622324A

PATIENT
  Age: 37 Year
  Sex: Male

DRUGS (1)
  1. PAXIL CR [Suspect]
     Dosage: 37.5TAB TWICE PER DAY
     Route: 048

REACTIONS (2)
  - ADVERSE EVENT [None]
  - PHARMACEUTICAL PRODUCT COMPLAINT [None]
